FAERS Safety Report 21984555 (Version 1)
Quarter: 2023Q1

REPORT INFORMATION
  Report Type: Spontaneous
  Country: US (occurrence: None)
  Receive Date: 20230209
  Receipt Date: 20230209
  Transmission Date: 20230417
  Serious: No
  Sender: FDA-Public Use
  Company Number: None

PATIENT
  Age: 81 Year
  Sex: Male
  Weight: 111.13 kg

DRUGS (20)
  1. LENALIDOMIDE [Suspect]
     Active Substance: LENALIDOMIDE
     Indication: Plasma cell myeloma
     Dosage: OTHER FREQUENCY : 21DOF28DAYS;?
     Route: 048
  2. ACYCLOVIR [Concomitant]
  3. ALBUTEROL [Concomitant]
  4. AMLODIPINE [Concomitant]
     Active Substance: AMLODIPINE BESYLATE
  5. ASPIRIN [Concomitant]
  6. BRIMONIDINE TARTRATE-TIMOLOL [Concomitant]
  7. CARVEDILOL [Concomitant]
     Active Substance: CARVEDILOL
  8. DEXAMETHASONE [Concomitant]
  9. FERROU SULFATE [Concomitant]
  10. LEVOTHYROXINE [Concomitant]
  11. LISINOPRIL [Concomitant]
  12. METFORMIN [Concomitant]
  13. MONTELUKAST [Concomitant]
  14. MULTIVITAMINS [Concomitant]
  15. NIFEDIPINE ER [Concomitant]
  16. OZEMPIC [Concomitant]
     Active Substance: SEMAGLUTIDE
  17. SIMVASTATIN [Concomitant]
  18. TADALAFIL [Concomitant]
  19. TAMSULOSIN [Concomitant]
  20. VITAMIN D3 [Concomitant]

REACTIONS (2)
  - Renal cyst [None]
  - Therapy interrupted [None]
